FAERS Safety Report 10456279 (Version 2)
Quarter: 2014Q4

REPORT INFORMATION
  Report Type: Spontaneous
  Country: US (occurrence: None)
  Receive Date: 20140822
  Receipt Date: 20141121
  Transmission Date: 20150528
  Serious: Yes (Hospitalization)
  Sender: FDA-Public Use
  Company Number: 1000069158

PATIENT
  Age: 23 Year
  Sex: Female
  Weight: 59 kg

DRUGS (2)
  1. CITALOPRAM [Suspect]
     Active Substance: CITALOPRAM HYDROBROMIDE
     Dates: end: 20140707
  2. FETZIMA [Suspect]
     Active Substance: LEVOMILNACIPRAN HYDROCHLORIDE
     Dates: start: 20140708, end: 20140716

REACTIONS (5)
  - Syncope [None]
  - Blood pressure increased [None]
  - Hypoaesthesia [None]
  - Tachycardia [None]
  - Tremor [None]

NARRATIVE: CASE EVENT DATE: 20140715
